FAERS Safety Report 6531001-5 (Version None)
Quarter: 2010Q1

REPORT INFORMATION
  Report Type: 
  Country: None (occurrence: None)
  Receive Date: 20100108
  Receipt Date: 20090824
  Transmission Date: 20100710
  Serious: No
  Sender: FDA-Public Use
  Company Number: A0803779A

PATIENT
  Age: 52 Year
  Sex: Male

DRUGS (8)
  1. LOVAZA [Suspect]
     Dosage: 2CAP TWICE PER DAY
     Route: 048
     Dates: start: 20070101
  2. CRESTOR [Concomitant]
  3. LISINOPRIL [Concomitant]
  4. PROTONIX [Concomitant]
  5. METANX [Concomitant]
  6. NIASPAN [Concomitant]
  7. ASPIRIN [Concomitant]
  8. MULTI-VITAMIN [Concomitant]

REACTIONS (1)
  - BLOOD HEAVY METAL INCREASED [None]
